FAERS Safety Report 25715600 (Version 1)
Quarter: 2025Q3

REPORT INFORMATION
  Report Type: Spontaneous
  Country: US (occurrence: US)
  Receive Date: 20250822
  Receipt Date: 20250822
  Transmission Date: 20251021
  Serious: No
  Sender: BAYER HEALTHCARE PHARMACEUTICALS INC.
  Company Number: US-BAYER-2025A110580

PATIENT
  Age: 66 Year
  Sex: Female

DRUGS (2)
  1. CLIMARA PRO [Suspect]
     Active Substance: ESTRADIOL\LEVONORGESTREL
     Indication: Loss of libido
     Route: 062
     Dates: start: 20250518
  2. PREMARIN [Concomitant]
     Active Substance: ESTROGENS, CONJUGATED
     Indication: Vulvovaginal dryness

REACTIONS (3)
  - Abdominal discomfort [Not Recovered/Not Resolved]
  - Vaginal discharge [Not Recovered/Not Resolved]
  - Product use in unapproved indication [None]

NARRATIVE: CASE EVENT DATE: 20250518
